FAERS Safety Report 8281845-7 (Version None)
Quarter: 2012Q2

REPORT INFORMATION
  Report Type: 
  Country: None (occurrence: None)
  Receive Date: 20120413
  Receipt Date: 20120410
  Transmission Date: 20120825
  Serious: Yes (Life-Threatening)
  Sender: FDA-Public Use
  Company Number: PHHY2012SE021425

PATIENT
  Sex: Male

DRUGS (2)
  1. INSULIN [Concomitant]
  2. VOLTAREN [Suspect]
     Indication: NEURALGIA
     Dosage: 1 TO 2 TABLETS WHEN NEEDED
     Route: 048
     Dates: start: 20120205, end: 20120228

REACTIONS (1)
  - HYPOGLYCAEMIA [None]
